FAERS Safety Report 7040587-6 (Version None)
Quarter: 2010Q4

REPORT INFORMATION
  Report Type: 
  Country: None (occurrence: None)
  Receive Date: 20101006
  Receipt Date: 20100929
  Transmission Date: 20110411
  Serious: Yes (Hospitalization)
  Sender: FDA-Public Use
  Company Number: TRP_07296_2010

PATIENT
  Sex: Female
  Weight: 57.6068 kg

DRUGS (2)
  1. RIBAVARIN [Suspect]
     Indication: HEPATITIS C
     Dosage: UNK ORAL
     Route: 048
     Dates: start: 20100620
  2. PEG-INTRON [Suspect]
     Indication: HEPATITIS C
     Dosage: UNK SUBCUTANEOUS
     Route: 058
     Dates: start: 20100620

REACTIONS (12)
  - ANAEMIA [None]
  - BALANCE DISORDER [None]
  - CONFUSIONAL STATE [None]
  - DECREASED APPETITE [None]
  - EAR DISCOMFORT [None]
  - EYE PAIN [None]
  - FATIGUE [None]
  - HEADACHE [None]
  - LOSS OF CONSCIOUSNESS [None]
  - MEMORY IMPAIRMENT [None]
  - PHOTOPHOBIA [None]
  - WEIGHT DECREASED [None]
